FAERS Safety Report 7979637-9 (Version None)
Quarter: 2011Q4

REPORT INFORMATION
  Report Type: 
  Country: None (occurrence: None)
  Receive Date: 20111214
  Receipt Date: 20111207
  Transmission Date: 20120403
  Serious: Yes (Other)
  Sender: FDA-Public Use
  Company Number: GB-ASTRAZENECA-2011SE74060

PATIENT
  Age: 61 Year
  Sex: Male

DRUGS (5)
  1. LOSARTAN POTASSIUM [Concomitant]
  2. VERAPAMIL [Concomitant]
  3. SIMVASTATIN [Suspect]
     Indication: HYPERTENSION
     Route: 048
  4. ROSUVASTATIN [Suspect]
     Route: 048
  5. ASPIRIN [Concomitant]

REACTIONS (6)
  - ARTHRALGIA [None]
  - MYALGIA [None]
  - ASTHENIA [None]
  - LIMB DISCOMFORT [None]
  - APATHY [None]
  - BURSITIS [None]
